FAERS Safety Report 15488683 (Version 1)
Quarter: 2018Q4

REPORT INFORMATION
  Report Type: Spontaneous
  Country: US (occurrence: US)
  Receive Date: 20181011
  Receipt Date: 20181011
  Transmission Date: 20190205
  Serious: No
  Sender: FDA-Public Use
  Company Number: US-PFIZER INC-2018408258

PATIENT
  Age: 41 Year
  Sex: Female
  Weight: 85.73 kg

DRUGS (1)
  1. NEURONTIN [Suspect]
     Active Substance: GABAPENTIN
     Indication: NEUROPATHY PERIPHERAL
     Dosage: 3600 MG, DAILY (MAXIMUM DOSE THREE TIMES A DAY)

REACTIONS (1)
  - Drug ineffective for unapproved indication [Unknown]
